FAERS Safety Report 13342103 (Version 1)
Quarter: 2017Q1

REPORT INFORMATION
  Report Type: Spontaneous
  Country: US (occurrence: US)
  Receive Date: 20170316
  Receipt Date: 20170316
  Transmission Date: 20170428
  Serious: Yes (Life-Threatening, Hospitalization, Disabling, Other)
  Sender: FDA-Public Use
  Company Number: None

PATIENT
  Age: 40 Year
  Sex: Male
  Weight: 61.29 kg

DRUGS (1)
  1. REVIA [Suspect]
     Active Substance: NALTREXONE HYDROCHLORIDE
     Indication: DEPENDENCE
     Dosage: ?          QUANTITY: 50 MG. 1 PILL 1 X BY MOUTH
     Route: 048
     Dates: start: 20170202, end: 20170202

REACTIONS (8)
  - Amnesia [None]
  - Tremor [None]
  - Trismus [None]
  - Seizure [None]
  - Pneumonia necrotising [None]
  - Aspiration [None]
  - Vomiting [None]
  - Chest pain [None]

NARRATIVE: CASE EVENT DATE: 20170202
